FAERS Safety Report 16170065 (Version 1)
Quarter: 2019Q2

REPORT INFORMATION
  Report Type: Spontaneous
  Country: US (occurrence: US)
  Receive Date: 20190408
  Receipt Date: 20190408
  Transmission Date: 20190711
  Serious: No
  Sender: FDA-Public Use
  Company Number: US-LUPIN PHARMACEUTICALS INC.-2019-01408

PATIENT
  Age: 30 Year
  Sex: Female

DRUGS (6)
  1. ARIPIPRAZOLE. [Suspect]
     Active Substance: ARIPIPRAZOLE
     Indication: ANXIETY
     Dosage: UNK
     Route: 065
  2. CLOBAZAM. [Suspect]
     Active Substance: CLOBAZAM
     Indication: AGGRESSION
  3. GUANFACINE. [Suspect]
     Active Substance: GUANFACINE
     Indication: AGGRESSION
  4. ARIPIPRAZOLE. [Suspect]
     Active Substance: ARIPIPRAZOLE
     Indication: AGGRESSION
  5. GUANFACINE. [Suspect]
     Active Substance: GUANFACINE
     Indication: ANXIETY
     Dosage: 1 MILLIGRAM, BID
     Route: 065
  6. CLOBAZAM. [Suspect]
     Active Substance: CLOBAZAM
     Indication: ANXIETY
     Dosage: 5 MILLIGRAM, BID
     Route: 065

REACTIONS (3)
  - Cognitive disorder [Unknown]
  - Drug ineffective [Unknown]
  - Irritability [Recovering/Resolving]
